FAERS Safety Report 18771020 (Version 4)
Quarter: 2024Q2

REPORT INFORMATION
  Report Type: Report from Study
  Country: BR (occurrence: BR)
  Receive Date: 20210121
  Receipt Date: 20240528
  Transmission Date: 20240715
  Serious: Yes (Hospitalization, Other)
  Sender: FDA-Public Use
  Company Number: BR-TAKEDA-BR201944057

PATIENT
  Age: 35 Year
  Sex: Male
  Weight: 65 kg

DRUGS (6)
  1. HUMAN IMMUNOGLOBULIN G\HYALURONIDASE RECOMBINANT HUMAN [Suspect]
     Active Substance: HUMAN IMMUNOGLOBULIN G\HYALURONIDASE (HUMAN RECOMBINANT)
     Indication: Primary immunodeficiency syndrome
     Dosage: 40 GRAM, Q3WEEKS
     Route: 058
     Dates: start: 201903
  2. HUMAN IMMUNOGLOBULIN G\HYALURONIDASE RECOMBINANT HUMAN [Suspect]
     Active Substance: HUMAN IMMUNOGLOBULIN G\HYALURONIDASE (HUMAN RECOMBINANT)
     Indication: Secondary immunodeficiency
     Dosage: 40 GRAM, Q3WEEKS
     Route: 058
     Dates: start: 201904
  3. HUMAN IMMUNOGLOBULIN G\HYALURONIDASE RECOMBINANT HUMAN [Suspect]
     Active Substance: HUMAN IMMUNOGLOBULIN G\HYALURONIDASE (HUMAN RECOMBINANT)
     Indication: Immunodeficiency
     Dosage: UNK UNK, Q4WEEKS
     Route: 058
  4. HUMAN IMMUNOGLOBULIN G\HYALURONIDASE RECOMBINANT HUMAN [Suspect]
     Active Substance: HUMAN IMMUNOGLOBULIN G\HYALURONIDASE (HUMAN RECOMBINANT)
     Dosage: UNK
     Route: 042
  5. HUMAN IMMUNOGLOBULIN G\HYALURONIDASE RECOMBINANT HUMAN [Suspect]
     Active Substance: HUMAN IMMUNOGLOBULIN G\HYALURONIDASE (HUMAN RECOMBINANT)
     Dosage: 2 DOSAGE FORM
     Route: 058
     Dates: start: 2019
  6. HUMAN IMMUNOGLOBULIN G [Concomitant]
     Active Substance: HUMAN IMMUNOGLOBULIN G
     Indication: Product used for unknown indication
     Dosage: UNK
     Route: 065

REACTIONS (7)
  - Pneumonia [Recovering/Resolving]
  - Hypokalaemia [Not Recovered/Not Resolved]
  - Diarrhoea [Not Recovered/Not Resolved]
  - COVID-19 [Unknown]
  - Insurance issue [Unknown]
  - Inappropriate schedule of product administration [Unknown]
  - Incorrect route of product administration [Unknown]

NARRATIVE: CASE EVENT DATE: 20230127
